FAERS Safety Report 6757919-6 (Version None)
Quarter: 2010Q2

REPORT INFORMATION
  Report Type: 
  Country: None (occurrence: None)
  Receive Date: 20100607
  Receipt Date: 20100526
  Transmission Date: 20101027
  Serious: Yes (Hospitalization, Other)
  Sender: FDA-Public Use
  Company Number: US-AMGEN-QUU414774

PATIENT
  Sex: Female

DRUGS (1)
  1. ENBREL [Suspect]
     Indication: RHEUMATOID ARTHRITIS
     Route: 058
     Dates: start: 20001001

REACTIONS (4)
  - FELTY'S SYNDROME [None]
  - INFECTED SKIN ULCER [None]
  - SKIN ULCER [None]
  - STAPHYLOCOCCAL INFECTION [None]
